FAERS Safety Report 7903331-3 (Version None)
Quarter: 2011Q4

REPORT INFORMATION
  Report Type: 
  Country: None (occurrence: None)
  Receive Date: 20111109
  Receipt Date: 20111107
  Transmission Date: 20120403
  Serious: No
  Sender: FDA-Public Use
  Company Number: US-PFIZER INC-2011225071

PATIENT
  Sex: Male
  Weight: 99.773 kg

DRUGS (2)
  1. PRISTIQ [Suspect]
     Indication: DEPRESSION
     Dosage: 100 MG, 1X/DAY
     Route: 048
     Dates: start: 20100101
  2. LEVOTHYROXINE [Concomitant]
     Indication: HYPOTHYROIDISM
     Dosage: 5 UG

REACTIONS (4)
  - MALAISE [None]
  - NAUSEA [None]
  - DIZZINESS [None]
  - BLOOD PRESSURE INCREASED [None]
